FAERS Safety Report 18177910 (Version 1)
Quarter: 2020Q3

REPORT INFORMATION
  Report Type: Spontaneous
  Country: CN (occurrence: CN)
  Receive Date: 20200820
  Receipt Date: 20200820
  Transmission Date: 20201103
  Serious: Yes (Hospitalization, Other)
  Sender: FDA-Public Use
  Company Number: CN-PFIZER INC-2020317667

PATIENT
  Age: 20 Year
  Sex: Male
  Weight: 62.7 kg

DRUGS (1)
  1. MEDROL [Suspect]
     Active Substance: METHYLPREDNISOLONE
     Indication: FOCAL SEGMENTAL GLOMERULOSCLEROSIS
     Dosage: 8 MG, 1X/DAY
     Route: 048
     Dates: start: 20190107, end: 20200527

REACTIONS (11)
  - White blood cell count increased [Unknown]
  - Erythema [Unknown]
  - Oedema peripheral [Unknown]
  - Diarrhoea [Unknown]
  - C-reactive protein increased [Unknown]
  - Swelling [Unknown]
  - Pyrexia [Unknown]
  - Neutrophil count increased [Unknown]
  - Infection [Recovering/Resolving]
  - Rash [Recovering/Resolving]
  - Procalcitonin increased [Unknown]

NARRATIVE: CASE EVENT DATE: 20200630
